FAERS Safety Report 25030565 (Version 1)
Quarter: 2025Q1

REPORT INFORMATION
  Report Type: Report from Study
  Country: US (occurrence: US)
  Receive Date: 20250303
  Receipt Date: 20250303
  Transmission Date: 20250408
  Serious: Yes (Other)
  Sender: SERVIER
  Company Number: US-SERVIER-S21012417

PATIENT

DRUGS (5)
  1. TIBSOVO [Suspect]
     Active Substance: IVOSIDENIB
     Indication: Astrocytoma
     Route: 048
     Dates: start: 202111
  2. TIBSOVO [Suspect]
     Active Substance: IVOSIDENIB
     Route: 048
     Dates: start: 20220725
  3. TIBSOVO [Suspect]
     Active Substance: IVOSIDENIB
     Route: 048
  4. TIBSOVO [Suspect]
     Active Substance: IVOSIDENIB
     Route: 048
     Dates: start: 20220725, end: 20240927
  5. TIBSOVO [Suspect]
     Active Substance: IVOSIDENIB
     Dosage: 250 MG, QD
     Route: 048
     Dates: start: 202501, end: 202502

REACTIONS (5)
  - Malignant neoplasm progression [Unknown]
  - Colitis [Not Recovered/Not Resolved]
  - Wrist fracture [Unknown]
  - Off label use [Recovered/Resolved]
  - Product use issue [Recovered/Resolved]

NARRATIVE: CASE EVENT DATE: 20211101
